FAERS Safety Report 7132063-7 (Version None)
Quarter: 2010Q4

REPORT INFORMATION
  Report Type: 
  Country: None (occurrence: None)
  Receive Date: 20101202
  Receipt Date: 20101119
  Transmission Date: 20110411
  Serious: Yes (Other)
  Sender: FDA-Public Use
  Company Number: PHHY2010US79521

PATIENT
  Age: 82 Year
  Sex: Female

DRUGS (1)
  1. RECLAST [Suspect]
     Dosage: UNK
     Dates: start: 20100501

REACTIONS (3)
  - ARTHRITIS [None]
  - DIABETES MELLITUS [None]
  - JOINT STIFFNESS [None]
